FAERS Safety Report 7728178-2 (Version None)
Quarter: 2011Q3

REPORT INFORMATION
  Report Type: 
  Country: None (occurrence: None)
  Receive Date: 20110905
  Receipt Date: 20110822
  Transmission Date: 20111222
  Serious: Yes (Other)
  Sender: FDA-Public Use
  Company Number: PHHY2011NO75725

PATIENT
  Age: 44 Year
  Sex: Male

DRUGS (1)
  1. EXFORGE [Suspect]

REACTIONS (7)
  - ARTHRALGIA [None]
  - NAUSEA [None]
  - FACE OEDEMA [None]
  - VOMITING [None]
  - CONJUNCTIVAL HYPERAEMIA [None]
  - HEADACHE [None]
  - DIARRHOEA [None]
